FAERS Safety Report 7860239-X (Version None)
Quarter: 2011Q4

REPORT INFORMATION
  Report Type: 
  Country: None (occurrence: None)
  Receive Date: 20111027
  Receipt Date: 20111019
  Transmission Date: 20120403
  Serious: Yes (Other)
  Sender: FDA-Public Use
  Company Number: GB-ROCHE-800989

PATIENT
  Sex: Female
  Weight: 66.2 kg

DRUGS (7)
  1. ACETAMINOPHEN [Concomitant]
  2. FERROUS SULFATE TAB [Concomitant]
  3. VEMURAFENIB [Suspect]
     Indication: MALIGNANT MELANOMA
     Dosage: LAST DOSE PRIOR TO SAE ON 04 SEP 2011.
     Route: 048
  4. SENNA [Concomitant]
  5. CETIRIZINE HCL [Concomitant]
  6. FUROSEMIDE [Concomitant]
  7. LEVOTHYROXINE SODIUM [Concomitant]

REACTIONS (2)
  - SQUAMOUS CELL CARCINOMA OF SKIN [None]
  - ACTINIC KERATOSIS [None]
